FAERS Safety Report 4733038-5 (Version None)
Quarter: 2005Q3

REPORT INFORMATION
  Report Type: 
  Country: None (occurrence: None)
  Receive Date: 20050803
  Receipt Date: 20050302
  Transmission Date: 20060218
  Serious: Yes (Hospitalization)
  Sender: FDA-Public Use
  Company Number: GB-GILEAD-2005-0008114

PATIENT
  Sex: Male

DRUGS (12)
  1. VIREAD [Suspect]
     Dates: start: 20041111, end: 20050225
  2. DDI [Concomitant]
     Dates: start: 20041111, end: 20050225
  3. DDI [Concomitant]
     Dates: start: 20050404
  4. ATAZANAVIR [Concomitant]
     Dates: start: 20041111, end: 20050225
  5. ATAZANAVIR [Concomitant]
     Dates: start: 20050404
  6. RITONAVIR [Concomitant]
     Dates: start: 20041111, end: 20050225
  7. RITONAVIR [Concomitant]
     Dates: start: 20050404
  8. PRAVASTATIN [Concomitant]
  9. FENOFIBRATE [Concomitant]
  10. SEPTRIN [Concomitant]
  11. SODIUM BICARBONATE [Concomitant]
     Indication: ACIDOSIS
  12. CALCICHEW [Concomitant]
     Indication: ACIDOSIS

REACTIONS (8)
  - BLOOD PHOSPHORUS DECREASED [None]
  - BLOOD POTASSIUM INCREASED [None]
  - DEHYDRATION [None]
  - DIABETES MELLITUS [None]
  - DRUG TOXICITY [None]
  - INADEQUATE DIET [None]
  - RENAL FAILURE ACUTE [None]
  - RENAL TUBULAR NECROSIS [None]
